FAERS Safety Report 21234349 (Version 1)
Quarter: 2022Q3

REPORT INFORMATION
  Report Type: Report from Study
  Country: CN (occurrence: CN)
  Receive Date: 20220819
  Receipt Date: 20220819
  Transmission Date: 20221027
  Serious: Yes (Other)
  Sender: FDA-Public Use
  Company Number: CN-JNJFOC-20220825091

PATIENT
  Age: 53 Year
  Sex: Female
  Weight: 57 kg

DRUGS (10)
  1. AMIVANTAMAB [Suspect]
     Active Substance: AMIVANTAMAB
     Indication: Non-small cell lung cancer
     Dosage: MOST RECENT DOSE 28-JUL-2022?DOSE 1050, UNITS NOT PROVIDED
     Route: 042
     Dates: start: 20210616
  2. GLYCOSAMINOGLYCANS [Concomitant]
     Active Substance: GLYCOSAMINOGLYCANS
     Indication: Prophylaxis
     Route: 061
     Dates: start: 20210630
  3. TRIAMCINOLONE [Concomitant]
     Active Substance: TRIAMCINOLONE
     Route: 061
     Dates: start: 20220324
  4. CHLORAMPHENICOL;DIETHYLSTILBESTROL [Concomitant]
     Route: 061
     Dates: start: 20220324
  5. COPTIS SPP.;ZINC [Concomitant]
     Route: 061
     Dates: start: 20220324
  6. LEVOFLOXACIN [Concomitant]
     Active Substance: LEVOFLOXACIN
     Indication: Conjunctivitis
     Route: 061
     Dates: start: 20220707
  7. EPHEDRINE HYDROCHLORIDE AND NITROFURAZONE [Concomitant]
     Indication: Dacryocystitis
     Route: 047
     Dates: start: 20220729
  8. CEFACLOR [Concomitant]
     Active Substance: CEFACLOR
     Indication: Dacryocystitis
     Route: 048
     Dates: start: 20220729
  9. COMPOUND MENTHOL NASAL [Concomitant]
     Indication: Dacryocystitis
     Route: 061
     Dates: start: 20220729
  10. AMIKACIN SULFATE [Concomitant]
     Active Substance: AMIKACIN SULFATE
     Indication: Dacryocystitis
     Route: 030
     Dates: start: 20220729

REACTIONS (1)
  - Dacryocystitis [Recovering/Resolving]

NARRATIVE: CASE EVENT DATE: 20220808
